FAERS Safety Report 17736126 (Version 1)
Quarter: 2020Q2

REPORT INFORMATION
  Report Type: Spontaneous
  Country: DE (occurrence: DE)
  Receive Date: 20200501
  Receipt Date: 20200501
  Transmission Date: 20200714
  Serious: Yes (Congenital Anomaly, Other)
  Sender: FDA-Public Use
  Company Number: DE-MYLANLABS-2020M1042881

PATIENT
  Age: 1 Day
  Sex: Female
  Weight: 2.42 kg

DRUGS (2)
  1. L-THYROXIN                         /00068001/ [Concomitant]
     Active Substance: LEVOTHYROXINE
     Indication: HYPOTHYROIDISM
     Dosage: 75 MICROGRAM, QD
     Route: 064
     Dates: start: 20180130, end: 20181024
  2. QUETIAPINE. [Suspect]
     Active Substance: QUETIAPINE
     Indication: OBSESSIVE THOUGHTS
     Dosage: 200 MILLIGRAM, QD
     Route: 064
     Dates: start: 20180130, end: 20181024

REACTIONS (4)
  - Foetal exposure during pregnancy [Recovered/Resolved]
  - Hypoglycaemia neonatal [Recovered/Resolved]
  - Benign enlargement of the subarachnoid spaces [Unknown]
  - Small for dates baby [Unknown]

NARRATIVE: CASE EVENT DATE: 20181024
